FAERS Safety Report 7095196-X (Version None)
Quarter: 2010Q4

REPORT INFORMATION
  Report Type: 
  Country: None (occurrence: None)
  Receive Date: 20101103
  Receipt Date: 20101004
  Transmission Date: 20110411
  Serious: Yes (Death, Life-Threatening, Hospitalization, Disabling, Other)
  Sender: FDA-Public Use
  Company Number: AUR-APL-2010-01137

PATIENT
  Age: 68 Year
  Sex: Male

DRUGS (3)
  1. CITALOPRAM [Suspect]
     Indication: DEPRESSION
     Dosage: 20MG, UNK, ORAL
     Route: 048
  2. BLINDED VACCINE INJECTION (GSK) [Suspect]
     Indication: NON-SMALL CELL LUNG CANCER
     Dosage: IM
     Route: 030
     Dates: start: 20091203, end: 20091203
  3. DIAZEPAM [Suspect]
     Indication: ANXIETY

REACTIONS (3)
  - CARDIAC ARREST [None]
  - CARDIAC FAILURE CONGESTIVE [None]
  - DRUG TOXICITY [None]
